FAERS Safety Report 4733519-4 (Version None)
Quarter: 2005Q3

REPORT INFORMATION
  Report Type: 
  Country: None (occurrence: None)
  Receive Date: 20050729
  Receipt Date: 20050713
  Transmission Date: 20060218
  Serious: Yes (Hospitalization)
  Sender: FDA-Public Use
  Company Number: 215187

PATIENT
  Age: 71 Year
  Sex: Male
  Weight: 95.9 kg

DRUGS (5)
  1. AVASTIN [Suspect]
     Indication: COLON CANCER
     Dosage: 726 MG, Q3W, INTRAVENOUS
     Route: 042
     Dates: start: 20050504, end: 20050525
  2. OXALIPLATIN (OXALIPLATIN) [Suspect]
     Indication: COLON CANCER
     Dosage: 278.2 MG, Q3W, INTRAVENOUS
     Route: 042
     Dates: start: 20050504, end: 20050522
  3. CAPECITABINE (CAPECITABINE) [Suspect]
     Indication: COLON CANCER
     Dosage: 2150 MG, Q3W, ORAL
     Route: 048
     Dates: start: 20050504, end: 20050522
  4. CRESTOR [Concomitant]
  5. TIMOPTIC [Concomitant]

REACTIONS (4)
  - CORONARY ARTERY DISEASE [None]
  - CORONARY ARTERY OCCLUSION [None]
  - EMBOLISM [None]
  - MYOCARDIAL INFARCTION [None]
